FAERS Safety Report 9943152 (Version 3)
Quarter: 2014Q2

REPORT INFORMATION
  Report Type: Spontaneous
  Country: US (occurrence: US)
  Receive Date: 20140303
  Receipt Date: 20140501
  Transmission Date: 20141212
  Serious: Yes (Hospitalization)
  Sender: FDA-Public Use
  Company Number: US-GLAXOSMITHKLINE-A1062103A

PATIENT
  Age: 69 Year
  Sex: Female

DRUGS (2)
  1. ADVAIR [Suspect]
     Indication: ASTHMA
     Route: 055
  2. UNSPECIFIED MEDICATIONS [Concomitant]

REACTIONS (4)
  - Throat cancer [Not Recovered/Not Resolved]
  - Tracheostomy [Not Recovered/Not Resolved]
  - Dysphonia [Not Recovered/Not Resolved]
  - General physical health deterioration [Unknown]
